FAERS Safety Report 22270223 (Version 1)
Quarter: 2023Q2

REPORT INFORMATION
  Report Type: Spontaneous
  Country: US (occurrence: None)
  Receive Date: 20230428
  Receipt Date: 20230428
  Transmission Date: 20230722
  Serious: No
  Sender: FDA-Public Use
  Company Number: None

PATIENT
  Age: 66 Year
  Sex: Female
  Weight: 74.25 kg

DRUGS (2)
  1. AMITRIPTYLINE [Suspect]
     Active Substance: AMITRIPTYLINE
     Indication: Insomnia
     Dosage: OTHER QUANTITY : 45 TABLET(S);?FREQUENCY : AT BEDTIME;?
     Route: 048
     Dates: start: 20230316, end: 20230423
  2. BENADRYL [Concomitant]
     Active Substance: DIPHENHYDRAMINE HYDROCHLORIDE

REACTIONS (29)
  - Off label use [None]
  - Drug ineffective [None]
  - Therapy change [None]
  - Diarrhoea [None]
  - Urinary retention [None]
  - Pollakiuria [None]
  - Abdominal pain upper [None]
  - Agitation [None]
  - Melaena [None]
  - Faeces discoloured [None]
  - Amnesia [None]
  - Confusional state [None]
  - Vision blurred [None]
  - Deafness [None]
  - Heart rate increased [None]
  - Blood pressure increased [None]
  - Irritability [None]
  - Decreased appetite [None]
  - Nausea [None]
  - Nightmare [None]
  - Lethargy [None]
  - Oropharyngeal pain [None]
  - Weight increased [None]
  - Dysarthria [None]
  - Aphasia [None]
  - Therapy cessation [None]
  - Withdrawal syndrome [None]
  - Brain fog [None]
  - Fatigue [None]

NARRATIVE: CASE EVENT DATE: 20230405
